FAERS Safety Report 10562326 (Version 3)
Quarter: 2015Q1

REPORT INFORMATION
  Report Type: Spontaneous
  Country: AR (occurrence: AR)
  Receive Date: 20141104
  Receipt Date: 20150309
  Transmission Date: 20150720
  Serious: Yes (Hospitalization, Other)
  Sender: FDA-Public Use
  Company Number: AR-AMGEN-ARGSP2014080178

PATIENT
  Age: 56 Year
  Sex: Female

DRUGS (1)
  1. ENBREL [Suspect]
     Active Substance: ETANERCEPT
     Indication: RHEUMATOID ARTHRITIS
     Dosage: 25 MG, 2X/WEEK
     Route: 065
     Dates: start: 20050428

REACTIONS (5)
  - Spinal disorder [Recovered/Resolved]
  - Motor dysfunction [Recovered/Resolved]
  - Pneumonia [Not Recovered/Not Resolved]
  - Humerus fracture [Recovering/Resolving]
  - Fall [Recovering/Resolving]

NARRATIVE: CASE EVENT DATE: 201312
